FAERS Safety Report 8156361-3 (Version None)
Quarter: 2012Q1

REPORT INFORMATION
  Report Type: 
  Country: None (occurrence: None)
  Receive Date: 20120222
  Receipt Date: 20120217
  Transmission Date: 20120608
  Serious: Yes (Other)
  Sender: FDA-Public Use
  Company Number: JP-PFIZER INC-2012042748

PATIENT
  Age: 77 Year
  Sex: Male

DRUGS (4)
  1. HALCION [Concomitant]
     Dosage: 0.25 MG DAILY
     Route: 048
  2. FAMOTIDINE [Concomitant]
     Dosage: UNK
     Route: 048
  3. LYRICA [Suspect]
     Dosage: 150 MG DAILY
     Route: 048
     Dates: start: 20111001
  4. METHYCOBAL [Concomitant]
     Dosage: UNK
     Route: 048

REACTIONS (1)
  - HAEMORRHAGE SUBCUTANEOUS [None]
